FAERS Safety Report 20008952 (Version 2)
Quarter: 2021Q4

REPORT INFORMATION
  Report Type: Spontaneous
  Country: US (occurrence: US)
  Receive Date: 20211029
  Receipt Date: 20211110
  Transmission Date: 20220304
  Serious: Yes (Other)
  Sender: FDA-Public Use
  Company Number: US-DRREDDYS-SPO/USA/21/0143182

PATIENT
  Age: 44 Year
  Sex: Female

DRUGS (1)
  1. ZENATANE [Suspect]
     Active Substance: ISOTRETINOIN
     Indication: Product used for unknown indication
     Dosage: RMA ISSUE DATE: 28/JULY/2021 4:12:51 PM, 23/AUGUST/2021 1:36:24 PM, 24/SEPTEMBER/2021 8:41:38 AM.
     Dates: start: 20210727

REACTIONS (2)
  - Hysterectomy [Unknown]
  - Treatment noncompliance [Unknown]
